FAERS Safety Report 4341380-5 (Version None)
Quarter: 2004Q2

REPORT INFORMATION
  Report Type: 
  Country: None (occurrence: None)
  Receive Date: 20040414
  Receipt Date: 20031229
  Transmission Date: 20050107
  Serious: Yes (Death)
  Sender: FDA-Public Use
  Company Number: C2003-3369.01

PATIENT
  Age: 37 Year
  Sex: Female

DRUGS (1)
  1. CLOZAPINE [Suspect]
     Dosage: 100MG BID AND 200MG Q HS ORAL
     Route: 048
     Dates: start: 20030203

REACTIONS (2)
  - BREAST CANCER [None]
  - METASTASES TO BONE [None]
